FAERS Safety Report 20481344 (Version 1)
Quarter: 2022Q1

REPORT INFORMATION
  Report Type: Report from Study
  Country: US (occurrence: US)
  Receive Date: 20220216
  Receipt Date: 20220216
  Transmission Date: 20220424
  Serious: Yes (Other)
  Sender: FDA-Public Use
  Company Number: US-BAYER-2022A021711

PATIENT
  Age: 29 Year
  Sex: Male

DRUGS (1)
  1. BETASERON [Suspect]
     Active Substance: INTERFERON BETA-1B
     Indication: Multiple sclerosis
     Dosage: 0.25 MG, QOD
     Route: 058
     Dates: start: 202005

REACTIONS (10)
  - Multiple sclerosis relapse [None]
  - Diplegia [None]
  - Pain in extremity [None]
  - Gait disturbance [None]
  - Dysstasia [None]
  - Visual impairment [None]
  - Depressed mood [None]
  - Depression [None]
  - Anhedonia [None]
  - Pain [None]

NARRATIVE: CASE EVENT DATE: 20220101
